FAERS Safety Report 7486332-1 (Version None)
Quarter: 2011Q2

REPORT INFORMATION
  Report Type: 
  Country: None (occurrence: None)
  Receive Date: 20110517
  Receipt Date: 20110506
  Transmission Date: 20111010
  Serious: Yes (Hospitalization, Other)
  Sender: FDA-Public Use
  Company Number: PHHY2011IN38180

PATIENT
  Age: 25 Year
  Sex: Female

DRUGS (1)
  1. DICLOFENAC SODIUM [Suspect]
     Indication: POSTOPERATIVE ANALGESIA
     Dosage: 75 MG, UNK
     Route: 042

REACTIONS (13)
  - RESPIRATORY RATE DECREASED [None]
  - ANAPHYLACTIC REACTION [None]
  - BLOOD FIBRINOGEN INCREASED [None]
  - CHEST DISCOMFORT [None]
  - DYSPNOEA [None]
  - PERIPHERAL COLDNESS [None]
  - PO2 DECREASED [None]
  - OXYGEN SATURATION DECREASED [None]
  - HEART RATE INCREASED [None]
  - BLOOD PRESSURE DECREASED [None]
  - FIBRIN D DIMER INCREASED [None]
  - RESPIRATORY FAILURE [None]
  - PALPITATIONS [None]
